FAERS Safety Report 4351314-5 (Version None)
Quarter: 2004Q2

REPORT INFORMATION
  Report Type: 
  Country: None (occurrence: None)
  Receive Date: 20040428
  Receipt Date: 20040414
  Transmission Date: 20050107
  Serious: Yes (Hospitalization, Other)
  Sender: FDA-Public Use
  Company Number: USA040361648

PATIENT
  Age: 75 Year
  Sex: Female
  Weight: 40 kg

DRUGS (9)
  1. FORTEO [Suspect]
     Indication: OSTEOPOROSIS
     Dosage: 20 UG/1 DAY
     Dates: start: 20030626
  2. EFFEXOR [Concomitant]
  3. TERAZOSIN HCL [Concomitant]
  4. ACIPHEX [Concomitant]
  5. POTASSIUM CHLORIDE [Concomitant]
  6. ZANTAC [Concomitant]
  7. ALPRAZOLAM [Concomitant]
  8. LIPITOR [Concomitant]
  9. SEREVENT [Concomitant]

REACTIONS (4)
  - FALL [None]
  - HIP FRACTURE [None]
  - HYPONATRAEMIA [None]
  - URINARY TRACT INFECTION [None]
